FAERS Safety Report 16985538 (Version 1)
Quarter: 2019Q4

REPORT INFORMATION
  Report Type: Spontaneous
  Country: US (occurrence: US)
  Receive Date: 20191101
  Receipt Date: 20191101
  Transmission Date: 20200122
  Serious: No
  Sender: FDA-Public Use
  Company Number: US-SA-2019SA298509

PATIENT
  Sex: Male

DRUGS (3)
  1. DUPIXENT [Suspect]
     Active Substance: DUPILUMAB
     Dosage: DELAYED INJECTION TO 4 TO 5 WEEKS RATHER
  2. PANTOPRAZOLE SODIUM. [Concomitant]
     Active Substance: PANTOPRAZOLE SODIUM
     Dosage: 20 MG
  3. DUPIXENT [Suspect]
     Active Substance: DUPILUMAB
     Indication: DERMATITIS ATOPIC
     Dosage: 300 MG, QOW
     Route: 058
     Dates: start: 201804

REACTIONS (6)
  - Condition aggravated [Unknown]
  - Conjunctival scar [Unknown]
  - Malaise [Unknown]
  - Conjunctival cyst [Recovered/Resolved]
  - Inappropriate schedule of product administration [Unknown]
  - Onychomycosis [Unknown]

NARRATIVE: CASE EVENT DATE: 2018
